FAERS Safety Report 4859982-6 (Version None)
Quarter: 2005Q4

REPORT INFORMATION
  Report Type: 
  Country: None (occurrence: None)
  Receive Date: 20051219
  Receipt Date: 20050829
  Transmission Date: 20060501
  Serious: Yes (Hospitalization)
  Sender: FDA-Public Use
  Company Number: US-MERCK-0508USA04775

PATIENT
  Age: 54 Year
  Sex: Female
  Weight: 113 kg

DRUGS (2)
  1. VIOXX [Suspect]
     Indication: SPONDYLITIS
     Route: 048
     Dates: start: 19950101, end: 19960201
  2. ASPIRIN [Concomitant]
     Route: 065

REACTIONS (6)
  - ADRENAL MASS [None]
  - CEREBROVASCULAR ACCIDENT [None]
  - CHEST PAIN [None]
  - MENTAL DISORDER [None]
  - PANCREATITIS [None]
  - TRANSIENT ISCHAEMIC ATTACK [None]
